FAERS Safety Report 10019953 (Version 1)
Quarter: 2014Q1

REPORT INFORMATION
  Report Type: Spontaneous
  Country: DK (occurrence: GB)
  Receive Date: 20140318
  Receipt Date: 20140318
  Transmission Date: 20141002
  Serious: Yes (Other)
  Sender: FDA-Public Use
  Company Number: GB-FRI-1000064611

PATIENT
  Age: 43 Year
  Sex: Female

DRUGS (4)
  1. CITALOPRAM [Suspect]
     Dosage: 10 MG
     Route: 048
     Dates: start: 20131112, end: 20131129
  2. CITALOPRAM [Suspect]
     Dosage: 20 MG
     Route: 048
     Dates: start: 20131129, end: 20140114
  3. CITALOPRAM [Suspect]
     Dosage: 30 MG
     Route: 048
     Dates: start: 20140114
  4. DEPO-PROVERA [Concomitant]
     Dates: start: 201312

REACTIONS (2)
  - Urinary tract infection [Unknown]
  - Haemorrhage urinary tract [Unknown]
